FAERS Safety Report 18991845 (Version 1)
Quarter: 2021Q1

REPORT INFORMATION
  Report Type: Spontaneous
  Country: US (occurrence: US)
  Receive Date: 20210309
  Receipt Date: 20210309
  Transmission Date: 20210420
  Serious: Yes (Life-Threatening, Hospitalization)
  Sender: FDA-Public Use
  Company Number: None

PATIENT
  Age: 83 Year
  Sex: Female
  Weight: 67.5 kg

DRUGS (7)
  1. NOVOLOG [Concomitant]
     Active Substance: INSULIN ASPART
  2. LISINOPRIL. [Concomitant]
     Active Substance: LISINOPRIL
  3. HYDROMORPHONE [Concomitant]
     Active Substance: HYDROMORPHONE
  4. SIMVASTATIN. [Concomitant]
     Active Substance: SIMVASTATIN
  5. XTAMPZA ER [Suspect]
     Active Substance: OXYCODONE
     Indication: BACK PAIN
     Route: 048
     Dates: start: 20210227, end: 20210304
  6. IRON [Concomitant]
     Active Substance: IRON
  7. MAGNESIUM [Concomitant]
     Active Substance: MAGNESIUM

REACTIONS (6)
  - Renal impairment [None]
  - Feeling abnormal [None]
  - Myocardial necrosis marker increased [None]
  - Tremor [None]
  - Dysstasia [None]
  - Oxygen saturation decreased [None]

NARRATIVE: CASE EVENT DATE: 20210304
